FAERS Safety Report 7487496-6 (Version None)
Quarter: 2011Q2

REPORT INFORMATION
  Report Type: 
  Country: None (occurrence: None)
  Receive Date: 20110518
  Receipt Date: 20110506
  Transmission Date: 20111010
  Serious: Yes (Hospitalization)
  Sender: FDA-Public Use
  Company Number: US-ELI_LILLY_AND_COMPANY-US201104002456

PATIENT
  Sex: Female
  Weight: 92.517 kg

DRUGS (6)
  1. LOPRESSOR [Concomitant]
     Indication: HYPERTENSION
     Dosage: 50 MG, UNK
  2. HYDRALAZINE HCL [Concomitant]
     Indication: HYPERTENSION
     Dosage: 50 MG, UNK
  3. AMARYL [Concomitant]
     Indication: TYPE 2 DIABETES MELLITUS
     Dosage: 2 MG, UNK
     Dates: start: 20090101, end: 20110411
  4. ZOCOR [Concomitant]
     Indication: BLOOD CHOLESTEROL INCREASED
     Dosage: 40 MG, UNK
  5. BYETTA [Suspect]
     Dosage: 10 UG, UNK
     Route: 058
     Dates: start: 20110301, end: 20110404
  6. BYETTA [Suspect]
     Indication: TYPE 2 DIABETES MELLITUS
     Dosage: 5 UG, UNK
     Route: 058
     Dates: start: 20110201, end: 20110301

REACTIONS (5)
  - DEHYDRATION [None]
  - NAUSEA [None]
  - VOMITING [None]
  - DIARRHOEA [None]
  - HYPERCALCAEMIA [None]
